FAERS Safety Report 18853292 (Version 1)
Quarter: 2021Q1

REPORT INFORMATION
  Report Type: Report from Study
  Country: PA (occurrence: PA)
  Receive Date: 20210205
  Receipt Date: 20210205
  Transmission Date: 20210420
  Serious: Yes (Hospitalization, Other)
  Sender: FDA-Public Use
  Company Number: NVSC2021PA023838

PATIENT
  Age: 78 Year
  Sex: Female

DRUGS (1)
  1. AMLODIPINE [Suspect]
     Active Substance: AMLODIPINE BESYLATE
     Indication: PRODUCT USED FOR UNKNOWN INDICATION
     Dosage: 10/320/25 MG, STARTED 28 DAYS AGO APPROXIMATELY
     Route: 065

REACTIONS (4)
  - Angiopathy [Unknown]
  - Vein disorder [Unknown]
  - Contusion [Unknown]
  - Diabetes mellitus [Unknown]
